FAERS Safety Report 22541792 (Version 1)
Quarter: 2023Q2

REPORT INFORMATION
  Report Type: Spontaneous
  Country: US (occurrence: None)
  Receive Date: 20230608
  Receipt Date: 20230608
  Transmission Date: 20230722
  Serious: Yes (Life-Threatening, Hospitalization)
  Sender: FDA-Public Use
  Company Number: None

PATIENT
  Age: 66 Year
  Sex: Female

DRUGS (4)
  1. WARFARIN [Suspect]
     Active Substance: WARFARIN
  2. MELOXICAM [Suspect]
     Active Substance: MELOXICAM
  3. ASPIRIN [Suspect]
     Active Substance: ASPIRIN
  4. OMEPRAZOLE [Suspect]
     Active Substance: OMEPRAZOLE

REACTIONS (3)
  - Fall [None]
  - Therapy cessation [None]
  - Haemoglobin decreased [None]

NARRATIVE: CASE EVENT DATE: 20230330
